FAERS Safety Report 4381865-9 (Version None)
Quarter: 2004Q2

REPORT INFORMATION
  Report Type: 
  Country: None (occurrence: None)
  Receive Date: 20040615
  Receipt Date: 20040602
  Transmission Date: 20050107
  Serious: Yes (Other)
  Sender: FDA-Public Use
  Company Number: 2004036863

PATIENT
  Age: 64 Year
  Sex: Male

DRUGS (1)
  1. SORTIS (ATORVASTATIN) [Suspect]
     Indication: ACUTE CORONARY SYNDROME
     Dosage: 20 MG (20 MG, 1 IN 1 D) ORAL
     Route: 048
     Dates: start: 20040505, end: 20040506

REACTIONS (1)
  - RHABDOMYOLYSIS [None]
